FAERS Safety Report 9188654 (Version 1)
Quarter: 2013Q1

REPORT INFORMATION
  Report Type: Spontaneous
  Country: US (occurrence: US)
  Receive Date: 20130325
  Receipt Date: 20130325
  Transmission Date: 20140127
  Serious: Yes (Other)
  Sender: FDA-Public Use
  Company Number: US-BAYER-2013-033571

PATIENT
  Age: 55 Year
  Sex: Female
  Weight: 66 kg

DRUGS (5)
  1. BAYER ASPIRIN REGIMEN ADULT LOW STRENGTH [Suspect]
     Dosage: UNK
     Dates: start: 201204
  2. VOLTAREN [Suspect]
     Indication: BACK PAIN
     Dosage: 2 G, QD
     Route: 061
  3. VOLTAREN [Suspect]
     Indication: BACK PAIN
     Dosage: UNK UNK, QD
     Route: 061
  4. VOLTAREN [Suspect]
     Indication: BACK PAIN
     Dosage: UNK
     Route: 061
  5. WARFARIN [Interacting]
     Dosage: UNK

REACTIONS (4)
  - Vaginal haemorrhage [Recovered/Resolved]
  - International normalised ratio increased [Recovered/Resolved]
  - Drug interaction [None]
  - Incorrect dose administered [None]
